FAERS Safety Report 22268105 (Version 3)
Quarter: 2023Q2

REPORT INFORMATION
  Report Type: Spontaneous
  Country: US (occurrence: US)
  Receive Date: 20230430
  Receipt Date: 20230509
  Transmission Date: 20230722
  Serious: Yes (Death, Hospitalization, Other)
  Sender: FDA-Public Use
  Company Number: US-002147023-NVSC2023US097087

PATIENT
  Age: 42 Year
  Sex: Male
  Weight: 73.2 kg

DRUGS (1)
  1. PLUVICTO [Suspect]
     Active Substance: LUTETIUM LU-177 VIPIVOTIDE TETRAXETAN
     Indication: Hormone-refractory prostate cancer
     Dosage: UNK
     Route: 042
     Dates: start: 20230213

REACTIONS (6)
  - Acute respiratory failure [Fatal]
  - Hypoxia [Fatal]
  - Hormone-refractory prostate cancer [Fatal]
  - Malignant neoplasm progression [Fatal]
  - Respiratory distress [Unknown]
  - Seizure [Unknown]

NARRATIVE: CASE EVENT DATE: 20230301
